FAERS Safety Report 7328066-X (Version None)
Quarter: 2011Q1

REPORT INFORMATION
  Report Type: 
  Country: None (occurrence: None)
  Receive Date: 20110303
  Receipt Date: 20110217
  Transmission Date: 20110831
  Serious: Yes (Disabling, Other)
  Sender: FDA-Public Use
  Company Number: US-CELGENEUS-163-21880-10113248

PATIENT
  Sex: Male
  Weight: 67.4 kg

DRUGS (16)
  1. AMITRIPTYLINE HYDROCHLORIDE [Concomitant]
     Dosage: 10 MILLIGRAM
     Route: 048
     Dates: start: 20100325
  2. ZOFRAN [Concomitant]
     Indication: PLATELET COUNT DECREASED
     Route: 065
     Dates: start: 20110123
  3. ACETAMINOPHEN [Concomitant]
     Route: 065
  4. REVLIMID [Suspect]
     Indication: MULTIPLE MYELOMA
     Dosage: 10 MILLIGRAM
     Route: 048
     Dates: start: 20090420, end: 20100318
  5. REVLIMID [Suspect]
     Indication: AMYLOIDOSIS
     Dosage: 10 MILLIGRAM
     Route: 048
     Dates: start: 20101110, end: 20101123
  6. PAMIDRONATE DISODIUM [Concomitant]
     Indication: MULTIPLE MYELOMA
     Route: 065
     Dates: start: 20090426, end: 20100318
  7. FLORINEF [Concomitant]
     Dosage: .2 MILLIGRAM
     Route: 065
  8. LEVOTHYROXINE [Concomitant]
     Dosage: .112 MICROGRAM
     Route: 048
     Dates: start: 20080924
  9. CALCIUM [Concomitant]
     Dosage: 600 MILLIGRAM
     Route: 048
     Dates: start: 20100318
  10. DEXAMETHASONE [Concomitant]
     Dosage: 40 MILLIGRAM
     Route: 048
     Dates: start: 20101112
  11. ATORVASTATIN CALCIUM [Concomitant]
     Dosage: 40 MILLIGRAM
     Route: 048
     Dates: start: 20080330
  12. OXYCODONE [Concomitant]
     Dosage: 5 MILLIGRAM
     Route: 048
     Dates: start: 20101110
  13. OMEPRAZOLE [Concomitant]
     Dosage: 20 MILLIGRAM
     Route: 065
  14. ASPIRIN [Concomitant]
     Dosage: 320 MILLIGRAM
     Route: 048
     Dates: start: 20090623
  15. ASPIRIN [Concomitant]
     Dosage: 160 MILLIGRAM
     Route: 048
     Dates: start: 20100318
  16. VITAMIN D [Concomitant]
     Dosage: 1000 MILLIGRAM
     Route: 048
     Dates: start: 20100318

REACTIONS (8)
  - FALL [None]
  - ANAEMIA [None]
  - RENAL IMPAIRMENT [None]
  - HIP FRACTURE [None]
  - NEUROPATHY PERIPHERAL [None]
  - KERATITIS [None]
  - SYNCOPE [None]
  - ORTHOSTATIC HYPOTENSION [None]
